FAERS Safety Report 6437691-X (Version None)
Quarter: 2009Q4

REPORT INFORMATION
  Report Type: 
  Country: None (occurrence: None)
  Receive Date: 20091112
  Receipt Date: 20091109
  Transmission Date: 20100525
  Serious: Yes (Hospitalization)
  Sender: FDA-Public Use
  Company Number: D0063741A

PATIENT
  Age: 40 Year
  Sex: Male
  Weight: 105 kg

DRUGS (6)
  1. CEFUHEXAL [Suspect]
     Dosage: 500MG TWICE PER DAY
     Route: 048
     Dates: start: 20090812, end: 20090823
  2. DOXYCYCLIN [Suspect]
     Dosage: 200MG PER DAY
     Route: 048
     Dates: start: 20090727, end: 20090819
  3. EXFORGE [Suspect]
     Dosage: 170MG PER DAY
     Route: 048
     Dates: start: 20090401
  4. PANTOPRAZOLE SODIUM [Suspect]
     Dosage: 40MG PER DAY
     Route: 048
     Dates: start: 20060101
  5. PENICILLIN VK [Suspect]
     Route: 048
     Dates: start: 20090720, end: 20090726
  6. TERBINAFIN [Suspect]
     Indication: FUNGAL INFECTION
     Dosage: 250MG PER DAY
     Route: 048
     Dates: start: 20090701, end: 20090720

REACTIONS (5)
  - ASTHENIA [None]
  - GENERAL PHYSICAL HEALTH DETERIORATION [None]
  - HEPATIC ENZYME INCREASED [None]
  - HEPATOCELLULAR INJURY [None]
  - TREMOR [None]
